FAERS Safety Report 20435003 (Version 1)
Quarter: 2022Q1

REPORT INFORMATION
  Report Type: Report from Study
  Country: IT (occurrence: IT)
  Receive Date: 20220206
  Receipt Date: 20220206
  Transmission Date: 20220423
  Serious: Yes (Other)
  Sender: FDA-Public Use
  Company Number: IT-JNJFOC-20211221944

PATIENT

DRUGS (3)
  1. STELARA [Suspect]
     Active Substance: USTEKINUMAB
     Indication: Crohn^s disease
     Dosage: IV AT WEEK 0 : 3 VIALS IF BODY WEIGHT OF 55-85 KG
     Route: 058
  2. STELARA [Suspect]
     Active Substance: USTEKINUMAB
     Dosage: IV AT WEEK 0 : 2 VIALS IF BODY WEIGHT {55 KG
     Route: 058
  3. STELARA [Suspect]
     Active Substance: USTEKINUMAB
     Dosage: Q8W THEREAFTER
     Route: 058

REACTIONS (6)
  - Pyoderma gangrenosum [Unknown]
  - Uveitis [Unknown]
  - Peripheral spondyloarthritis [Unknown]
  - Drug ineffective [Unknown]
  - Erythema nodosum [Unknown]
  - Axial spondyloarthritis [Unknown]
